FAERS Safety Report 7077195-7 (Version None)
Quarter: 2010Q4

REPORT INFORMATION
  Report Type: 
  Country: None (occurrence: None)
  Receive Date: 20101101
  Receipt Date: 20101025
  Transmission Date: 20110411
  Serious: Yes (Other)
  Sender: FDA-Public Use
  Company Number: B0682125A

PATIENT
  Age: 30 Year
  Sex: Male

DRUGS (7)
  1. LAMOTRIGINE [Suspect]
     Indication: BIPOLAR DISORDER
     Route: 065
  2. CHLORPROMAZINE [Suspect]
     Indication: BIPOLAR DISORDER
     Route: 065
  3. LITHIUM [Concomitant]
  4. SULPIRIDE [Concomitant]
  5. CARBAMAZEPINE [Concomitant]
  6. ALPRAZOLAM [Concomitant]
  7. ZOLPIDEM [Concomitant]

REACTIONS (10)
  - BLISTER [None]
  - CONJUNCTIVITIS [None]
  - DERMATITIS BULLOUS [None]
  - PHOTOSENSITIVITY REACTION [None]
  - PRURITUS GENERALISED [None]
  - PYREXIA [None]
  - RASH ERYTHEMATOUS [None]
  - RESTLESSNESS [None]
  - SKIN PLAQUE [None]
  - TOXIC EPIDERMAL NECROLYSIS [None]
